FAERS Safety Report 5490963-8 (Version None)
Quarter: 2007Q4

REPORT INFORMATION
  Report Type: 
  Country: None (occurrence: None)
  Receive Date: 20071019
  Receipt Date: 20071008
  Transmission Date: 20080405
  Serious: Yes (Other)
  Sender: FDA-Public Use
  Company Number: AU-PFIZER INC-2007085044

PATIENT
  Age: 59 Year
  Sex: Female

DRUGS (5)
  1. NORVASC [Suspect]
  2. ENALAPRIL MALEATE [Concomitant]
  3. THIAZIDES [Concomitant]
  4. MOBIC [Concomitant]
  5. TRICYCLIC ANTIDEPRESSANTS [Concomitant]

REACTIONS (8)
  - CHROMATURIA [None]
  - CONSTIPATION [None]
  - DIZZINESS [None]
  - DYSPEPSIA [None]
  - FLUSHING [None]
  - GASTROOESOPHAGEAL REFLUX DISEASE [None]
  - HYPERSENSITIVITY [None]
  - PAIN IN EXTREMITY [None]
